FAERS Safety Report 7312770-3 (Version None)
Quarter: 2011Q1

REPORT INFORMATION
  Report Type: 
  Country: None (occurrence: None)
  Receive Date: 20110224
  Receipt Date: 20110214
  Transmission Date: 20110831
  Serious: Yes (Other)
  Sender: FDA-Public Use
  Company Number: CN-WATSON-2011-01999

PATIENT
  Sex: Female

DRUGS (1)
  1. CYCLOPHOSPHAMIDE [Suspect]
     Indication: ABORTION SPONTANEOUS
     Dosage: 100 MG, DAILY
     Route: 065

REACTIONS (6)
  - THERAPEUTIC RESPONSE UNEXPECTED [None]
  - GESTATIONAL DIABETES [None]
  - ABORTION SPONTANEOUS [None]
  - PREMATURE RUPTURE OF MEMBRANES [None]
  - HYPERTENSION [None]
  - PREMATURE LABOUR [None]
